FAERS Safety Report 18377542 (Version 3)
Quarter: 2021Q3

REPORT INFORMATION
  Report Type: Spontaneous
  Country: US (occurrence: US)
  Receive Date: 20201013
  Receipt Date: 20210908
  Transmission Date: 20211014
  Serious: Yes (Hospitalization, Other)
  Sender: FDA-Public Use
  Company Number: US-AMNEAL PHARMACEUTICALS-2020-AMRX-03126

PATIENT
  Age: 38 Year
  Sex: Female
  Weight: 86 kg

DRUGS (11)
  1. CYCLOBENZAPRINE. [Concomitant]
     Active Substance: CYCLOBENZAPRINE
     Indication: SCOLIOSIS
     Dosage: 1 TABLETS, DAILY
     Route: 048
     Dates: start: 20200826, end: 20200830
  2. ELAGOLIX [Suspect]
     Active Substance: ELAGOLIX
     Dosage: 200 MILLIGRAM, 2X/DAY
     Route: 048
     Dates: start: 20200909
  3. CETRIZINE [Concomitant]
     Active Substance: CETIRIZINE HYDROCHLORIDE
     Indication: SEASONAL ALLERGY
     Dosage: 10 MILLIGRAM, DAILY
     Route: 048
     Dates: start: 20130130
  4. CYCLOBENZAPRINE. [Concomitant]
     Active Substance: CYCLOBENZAPRINE
     Indication: BACK PAIN
     Dosage: 10 MG AS REQUIRED
     Route: 048
     Dates: start: 20181105
  5. VITAMIN D [COLECALCIFEROL] [Concomitant]
     Active Substance: CHOLECALCIFEROL
     Indication: VITAMIN D DEFICIENCY
     Dosage: 5000 INTERNATIONAL UNIT, 1X/DAY
     Route: 048
     Dates: start: 20181205
  6. ELAGOLIX [Suspect]
     Active Substance: ELAGOLIX
     Indication: ENDOMETRIOSIS
     Dosage: 200 MILLIGRAM, 2X/DAY
     Route: 048
     Dates: start: 20191220, end: 20200906
  7. TRAMADOL. [Concomitant]
     Active Substance: TRAMADOL
     Indication: SCOLIOSIS
     Dosage: 50 MILLIGRAM, 1X/DAY
     Route: 048
     Dates: start: 20200826, end: 20200826
  8. ACTIVELLA [Suspect]
     Active Substance: ESTRADIOL\NORETHINDRONE ACETATE
     Indication: ENDOMETRIOSIS
     Dosage: 1 DOSAGE FORM, 1X/DAY
     Route: 048
     Dates: start: 20191220, end: 20200906
  9. ACTIVELLA [Suspect]
     Active Substance: ESTRADIOL\NORETHINDRONE ACETATE
     Dosage: 1 DOSAGE FORM, 1X/DAY
     Route: 048
     Dates: start: 20200909
  10. EXCEDRIN [ACETYLSALICYLIC ACID;CAFFEINE;PARACETAMOL;SALICYLAMIDE] [Concomitant]
     Active Substance: ACETAMINOPHEN\ASPIRIN\CAFFEINE\SALICYLAMIDE
     Indication: MIGRAINE
     Dosage: 250/250 AS REQUIRED
     Route: 048
     Dates: start: 20080130
  11. PAROXETINE. [Concomitant]
     Active Substance: PAROXETINE
     Indication: DYSPHORIA
     Dosage: 10 MILLIGRAM, 1X/DAY
     Route: 048
     Dates: start: 20181212

REACTIONS (1)
  - Cholecystitis [Recovered/Resolved]

NARRATIVE: CASE EVENT DATE: 20200907
